FAERS Safety Report 6254987-5 (Version None)
Quarter: 2009Q3

REPORT INFORMATION
  Report Type: 
  Country: None (occurrence: None)
  Receive Date: 20090702
  Receipt Date: 20090629
  Transmission Date: 20100115
  Serious: Yes (Hospitalization)
  Sender: FDA-Public Use
  Company Number: FR-MERCK-0906FRA00130

PATIENT
  Age: 70 Year
  Sex: Female

DRUGS (5)
  1. JANUVIA [Suspect]
     Indication: DIABETES MELLITUS
     Route: 048
     Dates: start: 20081215, end: 20090201
  2. HYZAAR [Concomitant]
     Indication: HYPERTENSION
     Route: 048
  3. TRIMETAZIDINE HYDROCHLORIDE [Concomitant]
     Route: 048
  4. FENOFIBRATE [Concomitant]
     Route: 048
  5. ESOMEPRAZOLE MAGNESIUM [Concomitant]
     Route: 048

REACTIONS (1)
  - POLYARTHRITIS [None]
